FAERS Safety Report 8963026 (Version 1)
Quarter: 2012Q4

REPORT INFORMATION
  Report Type: 
  Country: CA (occurrence: CA)
  Receive Date: 20121213
  Receipt Date: 20121213
  Transmission Date: 20130627
  Serious: Yes (Hospitalization)
  Sender: FDA-Public Use
  Company Number: CA-PFIZER INC-2012310418

PATIENT
  Age: 42 Year
  Sex: Female
  Weight: 74 kg

DRUGS (7)
  1. SULFASALAZINE [Suspect]
     Dosage: UNK, 3x/day
  2. AMITRIPTYLINE [Concomitant]
     Dosage: UNK
  3. CALCITRIOL [Concomitant]
     Dosage: UNK
  4. CEFAZOLIN [Concomitant]
     Dosage: UNK
     Route: 030
  5. CLONAZEPAM [Concomitant]
     Dosage: UNK
  6. HYDROCHLOROTHIAZIDE [Concomitant]
     Dosage: 25mg daily
     Route: 048
  7. L-THYROXIN [Concomitant]
     Dosage: 0.15 mg, UNK
     Route: 048

REACTIONS (11)
  - Toxic epidermal necrolysis [Not Recovered/Not Resolved]
  - Stomatitis [Not Recovered/Not Resolved]
  - Lymphadenopathy [Not Recovered/Not Resolved]
  - Abdominal pain [Not Recovered/Not Resolved]
  - Fatigue [Not Recovered/Not Resolved]
  - Headache [Not Recovered/Not Resolved]
  - Nausea [Not Recovered/Not Resolved]
  - Oedema [Not Recovered/Not Resolved]
  - Pharyngitis [Not Recovered/Not Resolved]
  - Pyrexia [Not Recovered/Not Resolved]
  - Rash [Not Recovered/Not Resolved]
